FAERS Safety Report 4884401-3 (Version None)
Quarter: 2006Q1

REPORT INFORMATION
  Report Type: 
  Country: None (occurrence: None)
  Receive Date: 20060117
  Receipt Date: 20060117
  Transmission Date: 20060701
  Serious: Yes (Hospitalization, Other)
  Sender: FDA-Public Use
  Company Number: None

PATIENT
  Sex: Female
  Weight: 89 kg

DRUGS (1)
  1. CISPLATIN [Suspect]
     Indication: NASOPHARYNGEAL CANCER
     Dosage: SEE IMAGE
     Route: 042
     Dates: start: 20051107, end: 20051107

REACTIONS (10)
  - ANAEMIA [None]
  - CONSTIPATION [None]
  - DEHYDRATION [None]
  - HYPERCALCAEMIA [None]
  - LYMPHOPENIA [None]
  - NAUSEA [None]
  - ORAL PAIN [None]
  - PAIN [None]
  - PHARYNGOLARYNGEAL PAIN [None]
  - VOMITING [None]
